FAERS Safety Report 4387842-6 (Version None)
Quarter: 2004Q2

REPORT INFORMATION
  Report Type: 
  Country: None (occurrence: None)
  Receive Date: 20040623
  Receipt Date: 20040608
  Transmission Date: 20050107
  Serious: Yes (Hospitalization)
  Sender: FDA-Public Use
  Company Number: USA030639490

PATIENT
  Age: 67 Year
  Sex: Female
  Weight: 70 kg

DRUGS (10)
  1. FORTEO [Suspect]
     Dates: start: 20030603
  2. HYDROXYCHLOROQUINE SULFATE [Concomitant]
  3. CORTICOSTEROID NOS [Concomitant]
  4. DARVOCET-N 100 [Concomitant]
  5. COUMADIN [Concomitant]
  6. FUROSEMIDE [Concomitant]
  7. POTASSIUM CHLORIDE [Concomitant]
  8. LOTENSIN [Concomitant]
  9. AMITRIPTYLINE HCL [Concomitant]
  10. KEPPRA [Concomitant]

REACTIONS (10)
  - BACK PAIN [None]
  - BONE DISORDER [None]
  - CHOLECYSTECTOMY [None]
  - FLUSHING [None]
  - GALLBLADDER DISORDER [None]
  - HEADACHE [None]
  - PAIN EXACERBATED [None]
  - PHARMACEUTICAL PRODUCT COMPLAINT [None]
  - TOE OPERATION [None]
  - VOMITING [None]
